FAERS Safety Report 17757766 (Version 2)
Quarter: 2020Q2

REPORT INFORMATION
  Report Type: Spontaneous
  Country: GB (occurrence: GB)
  Receive Date: 20200507
  Receipt Date: 20200618
  Transmission Date: 20200714
  Serious: Yes (Disabling)
  Sender: FDA-Public Use
  Company Number: GB-BAYER-2020-071140

PATIENT
  Age: 34 Year
  Sex: Male
  Weight: 97 kg

DRUGS (6)
  1. TACROLIMUS. [Concomitant]
     Active Substance: TACROLIMUS
     Indication: IMMUNOSUPPRESSION
     Dosage: 7 MG
  2. TACROLIMUS. [Concomitant]
     Active Substance: TACROLIMUS
     Indication: IMMUNOSUPPRESSION
     Dosage: UNK
  3. LACIDIPINE [Concomitant]
     Active Substance: LACIDIPINE
     Dosage: UNK
  4. BISOPROLOL FUMARATE. [Concomitant]
     Active Substance: BISOPROLOL FUMARATE
     Dosage: UNK
  5. RAMIPRIL. [Concomitant]
     Active Substance: RAMIPRIL
     Dosage: UNK
  6. AVELOX [Suspect]
     Active Substance: MOXIFLOXACIN HYDROCHLORIDE
     Dosage: 400 MG
     Route: 048
     Dates: start: 20190130, end: 20190206

REACTIONS (21)
  - Nightmare [Unknown]
  - Ageusia [Unknown]
  - Mental disorder [Not Recovered/Not Resolved]
  - Muscle twitching [Not Recovered/Not Resolved]
  - Hypoaesthesia [Not Recovered/Not Resolved]
  - Tendon disorder [Not Recovered/Not Resolved]
  - Gait disturbance [Unknown]
  - Neuralgia [Unknown]
  - Fatigue [Unknown]
  - Visual impairment [Unknown]
  - Muscle contractions involuntary [Not Recovered/Not Resolved]
  - Nerve injury [Not Recovered/Not Resolved]
  - Back pain [Unknown]
  - Product prescribing error [Unknown]
  - Muscle contractions involuntary [Not Recovered/Not Resolved]
  - Peripheral coldness [Unknown]
  - Tinnitus [Not Recovered/Not Resolved]
  - Tendon injury [Not Recovered/Not Resolved]
  - Nerve injury [Not Recovered/Not Resolved]
  - Tremor [Unknown]
  - Formication [Not Recovered/Not Resolved]

NARRATIVE: CASE EVENT DATE: 20190131
